FAERS Safety Report 22147147 (Version 4)
Quarter: 2023Q4

REPORT INFORMATION
  Report Type: Spontaneous
  Country: US (occurrence: US)
  Receive Date: 20230328
  Receipt Date: 20231020
  Transmission Date: 20240110
  Serious: No
  Sender: FDA-Public Use
  Company Number: US-PFIZER INC-PV202300055767

PATIENT
  Age: 27 Year
  Sex: Male

DRUGS (1)
  1. XELJANZ XR [Suspect]
     Active Substance: TOFACITINIB CITRATE
     Dosage: 11 MG

REACTIONS (5)
  - Abscess [Unknown]
  - Infection [Unknown]
  - Condition aggravated [Unknown]
  - Laboratory test abnormal [Unknown]
  - Product dose omission issue [Unknown]
